FAERS Safety Report 14969502 (Version 1)
Quarter: 2018Q2

REPORT INFORMATION
  Report Type: Report from Study
  Country: AR (occurrence: AR)
  Receive Date: 20180604
  Receipt Date: 20180604
  Transmission Date: 20180711
  Serious: Yes (Other)
  Sender: FDA-Public Use
  Company Number: AR-SA-2018SA141673

PATIENT
  Sex: Male

DRUGS (1)
  1. INSULIN GLARGINE [Suspect]
     Active Substance: INSULIN GLARGINE
     Indication: TYPE 2 DIABETES MELLITUS
     Dosage: 40 IU, QD
     Dates: start: 20000101

REACTIONS (3)
  - Malaise [Unknown]
  - Diabetic metabolic decompensation [Unknown]
  - Device issue [Unknown]

NARRATIVE: CASE EVENT DATE: 20180518
